FAERS Safety Report 25853742 (Version 1)
Quarter: 2025Q3

REPORT INFORMATION
  Report Type: Spontaneous
  Country: US (occurrence: US)
  Receive Date: 20250926
  Receipt Date: 20250926
  Transmission Date: 20251021
  Serious: Yes (Death)
  Sender: GRIFOLS
  Company Number: US-IGSA-BIG0038233

PATIENT
  Age: 71 Year
  Sex: Female
  Weight: 49.4 kg

DRUGS (16)
  1. PROLASTIN-C LIQUID [Suspect]
     Active Substance: .ALPHA.1-PROTEINASE INHIBITOR HUMAN
     Indication: Alpha-1 antitrypsin deficiency
     Dosage: 3090 MILLIGRAM, Q.WK.
     Route: 042
  2. OXYGEN [Concomitant]
     Active Substance: OXYGEN
  3. BELSOMRA [Concomitant]
     Active Substance: SUVOREXANT
     Route: 048
  4. FLUTICASONE PROPIONATE [Concomitant]
     Active Substance: FLUTICASONE PROPIONATE
  5. HYDROXYCHLOROQUINE SULFATE [Concomitant]
     Active Substance: HYDROXYCHLOROQUINE SULFATE
  6. LEVALBUTEROL [Concomitant]
     Active Substance: LEVALBUTEROL
  7. BREZTRI AEROSPHERE [BUDESONIDE;FORMOTEROL FUMARATE;GLYCOPYRRONIUM BROM [Concomitant]
  8. FORMOTEROL FUMARATE [Concomitant]
     Active Substance: FORMOTEROL FUMARATE
  9. OXYCODONE AND ACETAMINOPHEN [Concomitant]
     Active Substance: ACETAMINOPHEN\OXYCODONE HYDROCHLORIDE
  10. GUAIFENESIN\PSEUDOEPHEDRINE HYDROCHLORIDE [Concomitant]
     Active Substance: GUAIFENESIN\PSEUDOEPHEDRINE HYDROCHLORIDE
  11. LEVALBUTEROL TARTRATE [Concomitant]
     Active Substance: LEVALBUTEROL TARTRATE
  12. ATORVASTATIN CALCIUM [Concomitant]
     Active Substance: ATORVASTATIN CALCIUM
     Route: 048
  13. SERTRALINE HYDROCHLORIDE [Concomitant]
     Active Substance: SERTRALINE HYDROCHLORIDE
     Route: 048
  14. XYZAL [Concomitant]
     Active Substance: LEVOCETIRIZINE DIHYDROCHLORIDE
     Route: 048
  15. BUDESONIDE [Concomitant]
     Active Substance: BUDESONIDE
  16. GABAPENTIN [Concomitant]
     Active Substance: GABAPENTIN
     Route: 048

REACTIONS (1)
  - Death [Fatal]

NARRATIVE: CASE EVENT DATE: 20250817
